FAERS Safety Report 4499596-3 (Version None)
Quarter: 2004Q4

REPORT INFORMATION
  Report Type: 
  Country: None (occurrence: None)
  Receive Date: 20041112
  Receipt Date: 20041102
  Transmission Date: 20050328
  Serious: Yes (Other)
  Sender: FDA-Public Use
  Company Number: ES-JNJFOC-20040907859

PATIENT
  Age: 32 Year
  Sex: Male
  Weight: 75 kg

DRUGS (4)
  1. REMICADE [Suspect]
     Indication: CROHN'S DISEASE
     Dosage: TOTAL NUMBER OF 4 INFUSIONS
     Route: 042
  2. AZATHIOPRINE [Concomitant]
     Route: 065
     Dates: start: 20040101, end: 20040801
  3. PREDNISOLONE [Concomitant]
     Route: 065
     Dates: start: 20010101, end: 20040101
  4. MESALAMINE [Concomitant]
     Route: 065
     Dates: start: 20030901

REACTIONS (3)
  - LYMPH NODE TUBERCULOSIS [None]
  - PLEURAL EFFUSION [None]
  - PULMONARY TUBERCULOSIS [None]
